FAERS Safety Report 17255937 (Version 3)
Quarter: 2020Q1

REPORT INFORMATION
  Report Type: Spontaneous
  Country: US (occurrence: US)
  Receive Date: 20200110
  Receipt Date: 20200203
  Transmission Date: 20200409
  Serious: Yes (Life-Threatening, Hospitalization)
  Sender: FDA-Public Use
  Company Number: US-KARYOPHARM-2019KPT000942

PATIENT

DRUGS (3)
  1. DEXAMETHASONE. [Concomitant]
     Active Substance: DEXAMETHASONE
     Indication: PRODUCT USED FOR UNKNOWN INDICATION
     Dosage: 20 MG, 2X/WEEK
     Route: 048
     Dates: start: 20191202
  2. ZOFRAN [Concomitant]
     Active Substance: ONDANSETRON HYDROCHLORIDE
     Indication: NAUSEA
  3. XPOVIO [Suspect]
     Active Substance: SELINEXOR
     Indication: PLASMA CELL MYELOMA
     Dosage: 80 MG, 2X/WEEK
     Route: 048
     Dates: start: 20191202, end: 201912

REACTIONS (11)
  - Pneumonia [Unknown]
  - Nausea [Recovering/Resolving]
  - Leukopenia [Unknown]
  - Vomiting [Recovering/Resolving]
  - Decreased appetite [Unknown]
  - Musculoskeletal chest pain [Unknown]
  - Thrombocytopenia [Unknown]
  - Constipation [Unknown]
  - Anaemia [Unknown]
  - Fatigue [Unknown]
  - Weight decreased [Unknown]

NARRATIVE: CASE EVENT DATE: 201912
